FAERS Safety Report 8271275-6 (Version None)
Quarter: 2012Q2

REPORT INFORMATION
  Report Type: 
  Country: None (occurrence: None)
  Receive Date: 20120410
  Receipt Date: 20120404
  Transmission Date: 20120825
  Serious: Yes (Disabling, Other)
  Sender: FDA-Public Use
  Company Number: US-PFIZER INC-2012085799

PATIENT
  Sex: Male
  Weight: 124.72 kg

DRUGS (3)
  1. EFFEXOR XR [Suspect]
     Indication: DEPRESSION
     Dosage: 150 MG, 2X/DAY
     Route: 048
     Dates: start: 20100301
  2. XANAX [Suspect]
     Indication: ANXIETY
  3. XANAX [Suspect]
     Indication: DEPRESSION
     Dosage: 1 MG, 2X/DAY
     Route: 048
     Dates: start: 20040401

REACTIONS (2)
  - SCIATIC NERVE INJURY [None]
  - BACK INJURY [None]
